FAERS Safety Report 9466228 (Version 1)
Quarter: 2013Q3

REPORT INFORMATION
  Report Type: Spontaneous
  Country: US (occurrence: US)
  Receive Date: 20130820
  Receipt Date: 20130820
  Transmission Date: 20140515
  Serious: No
  Sender: FDA-Public Use
  Company Number: US-PFIZER INC-2013239069

PATIENT
  Age: 69 Year
  Sex: Female
  Weight: 47.17 kg

DRUGS (6)
  1. ADVIL [Suspect]
     Indication: BACK PAIN
     Dosage: 200 MG, THREE TIMES A DAY
     Route: 048
     Dates: start: 20130815
  2. ATORVASTATIN [Concomitant]
     Dosage: UNK, DAILY
  3. OMEPRAZOLE [Concomitant]
     Indication: GASTRIC DISORDER
     Dosage: UNK, DAILY
  4. SERTRALINE [Concomitant]
     Indication: DEPRESSION
     Dosage: UNK, DAILY
  5. ZYPREXA [Concomitant]
     Indication: DEPRESSION
     Dosage: UNK, DAILY
  6. ACETYLSALICYLIC ACID [Concomitant]
     Dosage: UNK, DAILY

REACTIONS (1)
  - Contusion [Not Recovered/Not Resolved]
